FAERS Safety Report 21338328 (Version 3)
Quarter: 2022Q4

REPORT INFORMATION
  Report Type: Report from Study
  Country: CN (occurrence: CN)
  Receive Date: 20220915
  Receipt Date: 20221108
  Transmission Date: 20230113
  Serious: Yes (Hospitalization)
  Sender: FDA-Public Use
  Company Number: CN-PFIZER INC-PV202200054110

PATIENT
  Age: 69 Year
  Sex: Male
  Weight: 64 kg

DRUGS (7)
  1. TALAZOPARIB [Suspect]
     Active Substance: TALAZOPARIB
     Indication: Prostate cancer metastatic
     Dosage: UNK UNK, 1X/DAY
     Route: 048
     Dates: start: 20220419, end: 20220621
  2. TALAZOPARIB [Suspect]
     Active Substance: TALAZOPARIB
     Dosage: UNK UNK, 1X/DAY
     Route: 048
     Dates: start: 20220721, end: 20220829
  3. ENZALUTAMIDE [Suspect]
     Active Substance: ENZALUTAMIDE
     Indication: Prostate cancer metastatic
     Dosage: 160 MG, 1X/DAY
     Route: 048
     Dates: start: 20220419, end: 20220621
  4. ENZALUTAMIDE [Suspect]
     Active Substance: ENZALUTAMIDE
     Dosage: 160 MG, 1X/DAY
     Route: 048
     Dates: start: 20220721, end: 20220829
  5. AMLODIPINE BESYLATE [Concomitant]
     Active Substance: AMLODIPINE BESYLATE
     Indication: Hypertension
     Dosage: 5 MG, 1X/DAY
     Route: 048
     Dates: start: 2013, end: 20220829
  6. ESTAZOLAM [Concomitant]
     Active Substance: ESTAZOLAM
     Indication: Dyssomnia
     Dosage: 1 MG, 1X/DAY
     Route: 048
     Dates: start: 20210527, end: 20220829
  7. CALCIUM CARBONATE AND VITAMIN D3 TABLETS (II) [Concomitant]
     Indication: Mineral supplementation
     Dosage: 1 DF, 1X/DAY
     Route: 048
     Dates: start: 20210804

REACTIONS (2)
  - Dizziness [Recovered/Resolved]
  - Syncope [Recovered/Resolved]

NARRATIVE: CASE EVENT DATE: 20220829
